FAERS Safety Report 20974615 (Version 1)
Quarter: 2022Q2

REPORT INFORMATION
  Report Type: Report from Study
  Country: US (occurrence: US)
  Receive Date: 20220617
  Receipt Date: 20220617
  Transmission Date: 20220721
  Serious: No
  Sender: FDA-Public Use
  Company Number: US-NOVARTISTESTPH-NVSC2022US139688

PATIENT
  Sex: Female

DRUGS (2)
  1. RYDAPT [Suspect]
     Active Substance: MIDOSTAURIN
     Indication: Product used for unknown indication
     Dosage: 25 MG, Q12H (25MG CAP X 112)
     Route: 048
     Dates: start: 20200619, end: 20220103
  2. XIIDRA [Suspect]
     Active Substance: LIFITEGRAST
     Indication: Product used for unknown indication
     Dosage: 5 ML, BID (EYE DROPS NOS)
     Route: 047
     Dates: start: 20200225, end: 20220601

REACTIONS (1)
  - Dry eye [Unknown]
